FAERS Safety Report 4369211-8 (Version None)
Quarter: 2004Q2

REPORT INFORMATION
  Report Type: 
  Country: None (occurrence: None)
  Receive Date: 20040525
  Receipt Date: 20040518
  Transmission Date: 20050107
  Serious: No
  Sender: FDA-Public Use
  Company Number: 2004UW07494

PATIENT
  Age: 4 Year
  Sex: Male
  Weight: 15.8759 kg

DRUGS (4)
  1. PULMICORT RESPULES [Suspect]
     Indication: ASTHMA
     Dosage: 0.25 MG/M2 ML
     Dates: start: 20031201, end: 20040301
  2. PULMICORT RESPULES [Suspect]
     Indication: PNEUMONIA
     Dosage: 0.25 MG/M2 ML
     Dates: start: 20031201, end: 20040301
  3. SINGULAIR [Concomitant]
  4. ALBUTEROL WITH SALINE [Concomitant]

REACTIONS (5)
  - ABNORMAL BEHAVIOUR [None]
  - AFFECT LABILITY [None]
  - AGGRESSION [None]
  - INCREASED APPETITE [None]
  - PSYCHOMOTOR HYPERACTIVITY [None]
